FAERS Safety Report 6895301-1 (Version None)
Quarter: 2010Q3

REPORT INFORMATION
  Report Type: 
  Country: None (occurrence: None)
  Receive Date: 20100802
  Receipt Date: 20100719
  Transmission Date: 20110219
  Serious: No
  Sender: FDA-Public Use
  Company Number: US-B.I. PHARMACEUTICALS,INC./RIDGEFIELD-2010-BP-03670BP

PATIENT
  Sex: Female

DRUGS (6)
  1. SPIRIVA [Suspect]
     Indication: CHRONIC OBSTRUCTIVE PULMONARY DISEASE
     Dosage: 18 MCG
     Route: 055
     Dates: start: 20080701
  2. DIOVAN [Concomitant]
  3. SYNTHROID [Concomitant]
     Dosage: 25 MCG
  4. CRESTOR [Concomitant]
     Dosage: 10 MG
  5. ADVAIR DISKUS 100/50 [Concomitant]
  6. VIVELLE-DOT [Concomitant]

REACTIONS (1)
  - DRUG INEFFECTIVE [None]
